FAERS Safety Report 9611621 (Version 2)
Quarter: 2013Q4

REPORT INFORMATION
  Report Type: Other
  Country: IT (occurrence: IT)
  Receive Date: 20131010
  Receipt Date: 20131121
  Transmission Date: 20140711
  Serious: Yes (Hospitalization, Other)
  Sender: FDA-Public Use
  Company Number: IT-TAKEDA-2013TEU001018

PATIENT
  Age: 89 Year
  Sex: Female

DRUGS (6)
  1. COMPETACT [Suspect]
     Indication: DIABETES MELLITUS
     Dosage: UNK
     Dates: start: 20110101, end: 20130827
  2. SOLOSA [Suspect]
     Indication: DIABETES MELLITUS
     Dosage: 2 MG, BID
     Route: 048
     Dates: start: 20110101, end: 20130827
  3. CARDIOASPIRIN [Concomitant]
     Dosage: UNK
  4. DELTACORTENE [Concomitant]
     Indication: TEMPORAL ARTERITIS
     Dosage: UNK
  5. OMEPRAZOLE [Concomitant]
     Dosage: UNK
  6. LORAZEPAM [Concomitant]
     Dosage: UNK

REACTIONS (3)
  - Hyperhidrosis [Recovering/Resolving]
  - Hypoglycaemic coma [Recovering/Resolving]
  - Bradyphrenia [Recovering/Resolving]
